FAERS Safety Report 9943074 (Version 1)
Quarter: 2014Q1

REPORT INFORMATION
  Report Type: Report from Study
  Country: US (occurrence: US)
  Receive Date: 20140303
  Receipt Date: 20140303
  Transmission Date: 20141002
  Serious: Yes (Other)
  Sender: FDA-Public Use
  Company Number: US-SA-2014SA025774

PATIENT
  Sex: 0

DRUGS (3)
  1. OXALIPLATIN [Suspect]
     Indication: BILIARY NEOPLASM
     Dosage: DOSE ADMINISTERED ON DAY 1 AND 15 OF 28 DAY CYCLE
     Route: 065
  2. GEMCITABINE [Suspect]
     Indication: BILIARY NEOPLASM
     Dosage: DOSE ADMINISTERED ON DAY 1 AND 15 OF 28 DAY CYCLE
     Route: 065
  3. PANITUMUMAB [Suspect]
     Indication: BILIARY NEOPLASM
     Dosage: DOSE ADMINISTERED ON DAY 1 AND 15 OF 28 DAY CYCLE
     Route: 065

REACTIONS (1)
  - Gallbladder perforation [Unknown]
